FAERS Safety Report 4467249-3 (Version None)
Quarter: 2004Q4

REPORT INFORMATION
  Report Type: 
  Country: None (occurrence: None)
  Receive Date: 20041006
  Receipt Date: 20040701
  Transmission Date: 20050328
  Serious: Yes (Hospitalization)
  Sender: FDA-Public Use
  Company Number: HU-SOLVAY-00204002211

PATIENT
  Age: 27624 Day
  Sex: Female
  Weight: 80.5 kg

DRUGS (5)
  1. SIMVASTATIN [Concomitant]
     Indication: ILL-DEFINED DISORDER
     Dosage: DAILY DOSE: UNK.
     Route: 048
     Dates: start: 20030916
  2. BLINDED THERAPY [PERINDOPRIL VS PLACEBO] [Suspect]
     Indication: CORONARY ARTERY DISEASE
     Dosage: DAILY DOSE: UNK.
     Route: 048
     Dates: start: 20030925
  3. METFORMIN [Concomitant]
     Indication: ILL-DEFINED DISORDER
     Dosage: DAILY DOSE: UNK.
     Route: 048
     Dates: start: 20031231
  4. HYPOTHIAZID [Concomitant]
     Indication: ILL-DEFINED DISORDER
     Dosage: DAILY DOSE: UNK.
     Route: 048
     Dates: start: 20030917
  5. BISOPROLOL FUMARATE [Concomitant]
     Indication: ILL-DEFINED DISORDER
     Dosage: DAILY DOSE: UNK.
     Route: 048
     Dates: start: 20040629

REACTIONS (2)
  - ATRIAL FLUTTER [None]
  - CORONARY ARTERY DISEASE [None]
